FAERS Safety Report 7931708-9 (Version None)
Quarter: 2011Q4

REPORT INFORMATION
  Report Type: 
  Country: None (occurrence: None)
  Receive Date: 20111121
  Receipt Date: 20111109
  Transmission Date: 20120403
  Serious: Yes (Other)
  Sender: FDA-Public Use
  Company Number: PHHY2011JP49340

PATIENT
  Sex: Male

DRUGS (6)
  1. HARNAL D [Concomitant]
     Indication: BENIGN PROSTATIC HYPERPLASIA
     Dosage: 0.2 MG, UNK
     Route: 048
     Dates: start: 20050525
  2. LEVOTHYROXINE SODIUM [Concomitant]
     Indication: HYPOTHYROIDISM
     Dosage: 100 MG, UNK
     Route: 048
     Dates: start: 20051129
  3. TASIGNA [Suspect]
     Indication: CHRONIC MYELOID LEUKAEMIA
     Dosage: 800 MG, DAILY
     Route: 048
     Dates: start: 20110518, end: 20110526
  4. TASIGNA [Suspect]
     Dosage: 400 MG, DAILY
     Route: 048
     Dates: start: 20110527, end: 20110528
  5. LENDORMIN [Concomitant]
     Dosage: 0.25 MG, UNK
     Route: 048
     Dates: start: 20040205
  6. LIPITOR [Concomitant]
     Indication: DYSLIPIDAEMIA
     Dosage: 10 MG, UNK
     Route: 048
     Dates: start: 20040416

REACTIONS (5)
  - PALPITATIONS [None]
  - ATRIAL FIBRILLATION [None]
  - MALAISE [None]
  - PYREXIA [None]
  - RASH [None]
